FAERS Safety Report 13669189 (Version 1)
Quarter: 2017Q2

REPORT INFORMATION
  Report Type: Spontaneous
  Country: FR (occurrence: FR)
  Receive Date: 20170620
  Receipt Date: 20170620
  Transmission Date: 20170830
  Serious: Yes (Hospitalization)
  Sender: FDA-Public Use
  Company Number: FR-BAYER-2017-113215

PATIENT
  Age: 68 Year
  Sex: Male

DRUGS (17)
  1. CERTICAN [Concomitant]
     Active Substance: EVEROLIMUS
     Dosage: 4 DF, QD
     Route: 048
  2. CELLCEPT [Concomitant]
     Active Substance: MYCOPHENOLATE MOFETIL\MYCOPHENOLATE MOFETIL HYDROCHLORIDE
     Dosage: 250 MG, UNK
  3. PERINDOPRIL [Concomitant]
     Active Substance: PERINDOPRIL
     Dosage: ARW  2MG, ORAL, 1 TABLET IN THE MORNING
  4. INEXIUM [Concomitant]
     Active Substance: ESOMEPRAZOLE
     Dosage: 20 MG, QD
     Route: 048
  5. DUOPLAVIN [Concomitant]
     Active Substance: ASPIRIN\CLOPIDOGREL
     Dosage: 1 TABLET IN THE MORNING . DON^T STOP WITHOUT CARDIOLOGIST OPINION
  6. DUROGESIC [Concomitant]
     Active Substance: FENTANYL
     Dosage: 25MG, ORAL, 1 TABLET AT NOON
  7. NEXAVAR [Suspect]
     Active Substance: SORAFENIB
     Indication: HEPATOCELLULAR CARCINOMA
     Dosage: 600 MG, QD
     Dates: start: 20170301, end: 20170524
  8. IMODIUM [LOPERAMIDE,SIMETICONE] [Concomitant]
     Dosage: 2 MG, PRN
  9. ZEFFIX [Concomitant]
     Active Substance: LAMIVUDINE
     Dosage: 100 MG, QD
     Route: 048
  10. KARDEGIC [Concomitant]
     Active Substance: ASPIRIN LYSINE
     Dosage: 75 MG, QD
     Route: 048
  11. ATORVASTATIN [Concomitant]
     Active Substance: ATORVASTATIN
     Dosage: EG 20MG, TABLET, ORAL, 1 TABLET IN THE EVENING
  12. BISOPRAL [Concomitant]
     Active Substance: BISOPROLOL FUMARATE
     Dosage: 2.5MG, ORAL, 1 TABLET IN THE MORNING
  13. CARDENSIEL [Concomitant]
     Active Substance: BISOPROLOL FUMARATE
     Dosage: 1.25 MG, QD
     Route: 048
  14. PANTOPRAZOLE [Concomitant]
     Active Substance: PANTOPRAZOLE
     Dosage: ARL 20MG, ORAL, 1 TABLET IN THE EVENING
  15. CELLCEPT [Concomitant]
     Active Substance: MYCOPHENOLATE MOFETIL\MYCOPHENOLATE MOFETIL HYDROCHLORIDE
     Dosage: 0.75 MG, QD
     Route: 048
  16. DAFALGAN [Concomitant]
     Active Substance: ACETAMINOPHEN
     Dosage: 1 G, QD
  17. PREVISCAN [Concomitant]
     Active Substance: FLUINDIONE
     Dosage: 20MG, ORAL, 0.5 TABLETS IN THE EVENING

REACTIONS (3)
  - Cardiac ventricular thrombosis [Not Recovered/Not Resolved]
  - Myocardial infarction [Recovered/Resolved with Sequelae]
  - Coronary artery stenosis [Recovered/Resolved]

NARRATIVE: CASE EVENT DATE: 20170522
